FAERS Safety Report 5281580-3 (Version None)
Quarter: 2007Q1

REPORT INFORMATION
  Report Type: 
  Country: None (occurrence: None)
  Receive Date: 20061222
  Receipt Date: 20060525
  Transmission Date: 20070707
  Serious: Yes (Hospitalization)
  Sender: FDA-Public Use
  Company Number: 2006-0009652

PATIENT
  Age: 33 Year
  Sex: Male

DRUGS (5)
  1. VIREAD [Suspect]
     Indication: HIV INFECTION
     Dates: start: 20060404
  2. EPZICOM [Concomitant]
  3. TIPRANAVIR (TIPRANAVIR) [Concomitant]
  4. RITONAVIR (RITONAVIR) [Concomitant]
  5. FUZEON [Concomitant]

REACTIONS (1)
  - RENAL FAILURE [None]
